FAERS Safety Report 5209436-2 (Version None)
Quarter: 2006Q4

REPORT INFORMATION
  Report Type: 
  Country: None (occurrence: None)
  Receive Date: 20061101
  Receipt Date: 20060617
  Transmission Date: 20070319
  Serious: No
  Sender: FDA-Public Use
  Company Number: 2006PV015838

PATIENT
  Age: 56 Year
  Sex: Female
  Weight: 75.2971 kg

DRUGS (5)
  1. SYMLIN [Suspect]
     Indication: DIABETES MELLITUS NON-INSULIN-DEPENDENT
     Dosage: 120 + 60 MCG; TID; SC
     Route: 058
     Dates: start: 20060527, end: 20060530
  2. SYMLIN [Suspect]
     Indication: DIABETES MELLITUS NON-INSULIN-DEPENDENT
     Dosage: 120 + 60 MCG; TID; SC
     Route: 058
     Dates: start: 20060531
  3. METFORMIN HCL [Suspect]
     Indication: DRUG USE FOR UNKNOWN INDICATION
     Dosage: 850 MG; BID; PO
     Route: 048
  4. HUMALOG [Concomitant]
  5. LANTUS [Concomitant]

REACTIONS (5)
  - ABDOMINAL PAIN UPPER [None]
  - BLOOD GLUCOSE INCREASED [None]
  - COLITIS [None]
  - DECREASED APPETITE [None]
  - DIARRHOEA [None]
